FAERS Safety Report 6141232-4 (Version None)
Quarter: 2009Q2

REPORT INFORMATION
  Report Type: 
  Country: None (occurrence: None)
  Receive Date: 20090402
  Receipt Date: 20090320
  Transmission Date: 20091009
  Serious: Yes (Hospitalization)
  Sender: FDA-Public Use
  Company Number: PHHY2009DE10684

PATIENT
  Age: 79 Year
  Sex: Female
  Weight: 58 kg

DRUGS (2)
  1. DICLOFENAC [Suspect]
     Route: 030
  2. METFORMIN HCL [Suspect]

REACTIONS (20)
  - ABDOMINAL ADHESIONS [None]
  - ABDOMINAL TENDERNESS [None]
  - ALTERED STATE OF CONSCIOUSNESS [None]
  - BLOOD GLUCOSE INCREASED [None]
  - BODY TEMPERATURE DECREASED [None]
  - DEHYDRATION [None]
  - DISORIENTATION [None]
  - DYSARTHRIA [None]
  - GASTROINTESTINAL SOUNDS ABNORMAL [None]
  - LACTIC ACIDOSIS [None]
  - LAPAROTOMY [None]
  - NAUSEA [None]
  - PO2 [None]
  - PUPILLARY DISORDER [None]
  - RESTLESSNESS [None]
  - SHOCK [None]
  - SINUS TACHYCARDIA [None]
  - TACHYPNOEA [None]
  - VENTRICULAR EXTRASYSTOLES [None]
  - VOMITING [None]
